FAERS Safety Report 5713339-4 (Version None)
Quarter: 2008Q2

REPORT INFORMATION
  Report Type: 
  Country: None (occurrence: None)
  Receive Date: 20080422
  Receipt Date: 20080414
  Transmission Date: 20081010
  Serious: Yes (Hospitalization)
  Sender: FDA-Public Use
  Company Number: US-ABBOTT-08P-163-0447009-00

PATIENT
  Age: 64 Year
  Sex: Female

DRUGS (5)
  1. CALCITRIOL [Suspect]
     Indication: HYPOPARATHYROIDISM
  2. CALCITRIOL [Suspect]
  3. CALCIUM CARBONATE [Suspect]
     Indication: HYPOPARATHYROIDISM
  4. CALCIUM CARBONATE [Suspect]
  5. VITAMIN D SUPPLEMENTED MILK [Suspect]
     Indication: HYPOPARATHYROIDISM
     Dosage: 2 GLASSES EVERY DAY

REACTIONS (3)
  - ASTHENIA [None]
  - MILK-ALKALI SYNDROME [None]
  - SYNCOPE [None]
